FAERS Safety Report 9129110 (Version 1)
Quarter: 2013Q1

REPORT INFORMATION
  Report Type: Spontaneous
  Country: US (occurrence: US)
  Receive Date: 20130125
  Receipt Date: 20130125
  Transmission Date: 20140127
  Serious: No
  Sender: FDA-Public Use
  Company Number: US-BRACCO-008501

PATIENT
  Age: 52 Year
  Sex: Male
  Weight: 131 kg

DRUGS (3)
  1. MULTIHANCE [Suspect]
     Indication: METASTASES TO CENTRAL NERVOUS SYSTEM
     Dosage: ADMINSTERED  20 ML LOT S2P102B EXP 31-MAR-2015; 45 TO 60 MIN LATER 15 ML LOT S2P260A EXP 30-JUN-2015
     Route: 042
     Dates: start: 20120823, end: 20120823
  2. MULTIHANCE [Suspect]
     Indication: DIAGNOSTIC PROCEDURE
     Dosage: ADMINSTERED  20 ML LOT S2P102B EXP 31-MAR-2015; 45 TO 60 MIN LATER 15 ML LOT S2P260A EXP 30-JUN-2015
     Route: 042
     Dates: start: 20120823, end: 20120823
  3. IRON [Concomitant]
     Dosage: ADMINISTERED IIN THE MORNING PRIOR TO MULTIHANCE ADMINISTRATIONS.
     Dates: start: 20120823, end: 20120823

REACTIONS (1)
  - Drug ineffective [Unknown]
